FAERS Safety Report 11668572 (Version 1)
Quarter: 2015Q4

REPORT INFORMATION
  Report Type: Spontaneous
  Country: US (occurrence: US)
  Receive Date: 20151027
  Receipt Date: 20151027
  Transmission Date: 20160304
  Serious: No
  Sender: FDA-Public Use
  Company Number: US-ELI_LILLY_AND_COMPANY-US201003007355

PATIENT
  Age: 73 Year
  Sex: Female

DRUGS (7)
  1. FLUTICASONE [Concomitant]
     Active Substance: FLUTICASONE\FLUTICASONE PROPIONATE
     Dosage: 2 D/F, DAILY (1/D)
  2. FORTEO [Suspect]
     Active Substance: TERIPARATIDE
     Indication: OSTEOPOROSIS
     Dosage: 20 UG, DAILY (1/D)
  3. FLOVENT [Concomitant]
     Active Substance: FLUTICASONE PROPIONATE
     Dosage: 1 D/F, DAILY (1/D)
  4. PREVACID [Concomitant]
     Active Substance: LANSOPRAZOLE
     Dosage: 30 MG, DAILY (1/D)
  5. PRIMPERAN /00041902/ [Concomitant]
     Dosage: 37.5 MG, DAILY (1/D)
  6. CALCIUM [Concomitant]
     Active Substance: CALCIUM
     Dosage: 2 D/F, DAILY (1/D)
  7. CENTRUM SILVER [Concomitant]
     Active Substance: MINERALS\VITAMINS
     Dosage: UNK, DAILY (1/D)

REACTIONS (5)
  - Oral pain [Unknown]
  - Hypersensitivity [Recovering/Resolving]
  - Cataract [Recovering/Resolving]
  - Eye irritation [Recovering/Resolving]
  - Cataract [Recovering/Resolving]

NARRATIVE: CASE EVENT DATE: 2010
